FAERS Safety Report 8363342-3 (Version None)
Quarter: 2012Q2

REPORT INFORMATION
  Report Type: 
  Country: None (occurrence: None)
  Receive Date: 20120516
  Receipt Date: 20111213
  Transmission Date: 20120825
  Serious: Yes (Other)
  Sender: FDA-Public Use
  Company Number: US-ALEXION-A201101851

PATIENT

DRUGS (6)
  1. FAMVIR [Concomitant]
     Dosage: 250 MG, TID
     Route: 048
  2. VITAMIN B-12 [Concomitant]
     Dosage: 1000 MCG, 1 X WEEK FOR 4 WEEKS
     Route: 058
  3. CIPROFLOXACIN HCL [Concomitant]
     Dosage: 500 MG, UNK
  4. VITAMIN B-12 [Concomitant]
     Dosage: 1000 MCG, Q MONTH
  5. SOLIRIS [Suspect]
     Dosage: 900 MG Q2W
  6. SOLIRIS [Suspect]
     Indication: PAROXYSMAL NOCTURNAL HAEMOGLOBINURIA
     Dosage: UNK, QW
     Route: 042

REACTIONS (3)
  - HAEMATOCRIT DECREASED [None]
  - HAEMOGLOBIN DECREASED [None]
  - RED BLOOD CELL COUNT DECREASED [None]
